FAERS Safety Report 6507216-9 (Version None)
Quarter: 2009Q4

REPORT INFORMATION
  Report Type: 
  Country: None (occurrence: None)
  Receive Date: 20091221
  Receipt Date: 20091214
  Transmission Date: 20100525
  Serious: Yes (Other)
  Sender: FDA-Public Use
  Company Number: PHHY2009GB56272

PATIENT

DRUGS (1)
  1. FEMARA [Suspect]

REACTIONS (1)
  - DYSPHAGIA [None]
